FAERS Safety Report 19200484 (Version 1)
Quarter: 2021Q2

REPORT INFORMATION
  Report Type: Spontaneous
  Country: US (occurrence: US)
  Receive Date: 20210430
  Receipt Date: 20210430
  Transmission Date: 20210717
  Serious: Yes (Hospitalization)
  Sender: FDA-Public Use
  Company Number: None

PATIENT
  Age: 0 Day
  Sex: Female
  Weight: 2.72 kg

DRUGS (2)
  1. ABILIFY [Suspect]
     Active Substance: ARIPIPRAZOLE
  2. PROZAC [Concomitant]
     Active Substance: FLUOXETINE HYDROCHLORIDE

REACTIONS (7)
  - Neonatal respiratory distress syndrome [None]
  - Premature baby [None]
  - Maternal drugs affecting foetus [None]
  - Viral infection [None]
  - Jaundice [None]
  - Exposure during pregnancy [None]
  - Poor feeding infant [None]

NARRATIVE: CASE EVENT DATE: 20190621
